FAERS Safety Report 20493502 (Version 1)
Quarter: 2022Q1

REPORT INFORMATION
  Report Type: Spontaneous
  Country: FR (occurrence: FR)
  Receive Date: 20220221
  Receipt Date: 20220221
  Transmission Date: 20220423
  Serious: Yes (Hospitalization)
  Sender: FDA-Public Use
  Company Number: FR-NORGINE LIMITED-NOR202103734

PATIENT
  Age: 55 Year
  Sex: Female

DRUGS (4)
  1. SIMPONI [Suspect]
     Active Substance: GOLIMUMAB
     Indication: Colitis ulcerative
     Dosage: 50 MG, MONTHLY (I INJECTION)
     Route: 058
     Dates: start: 201904, end: 2019
  2. SIMPONI [Suspect]
     Active Substance: GOLIMUMAB
     Dosage: 50 MG, MONTHLY (I INJECTION)
     Route: 058
     Dates: start: 201904, end: 2019
  3. SIMPONI [Suspect]
     Active Substance: GOLIMUMAB
     Dosage: 100 MG, MONTHLY
     Route: 058
     Dates: start: 201910
  4. AMINOSALICYLATE SODIUM [Suspect]
     Active Substance: AMINOSALICYLATE SODIUM
     Indication: Product used for unknown indication
     Route: 054
     Dates: start: 201812, end: 201812

REACTIONS (13)
  - Appendicitis [Unknown]
  - Insomnia [Unknown]
  - Myositis [Unknown]
  - Crying [Unknown]
  - Back pain [Unknown]
  - Hyperhidrosis [Unknown]
  - Pain [Unknown]
  - Abdominal discomfort [Unknown]
  - Skin burning sensation [Unknown]
  - Chills [Unknown]
  - Gastrointestinal pain [Unknown]
  - Ill-defined disorder [Unknown]
  - Paraesthesia [Unknown]

NARRATIVE: CASE EVENT DATE: 20181201
